FAERS Safety Report 4432696-2 (Version None)
Quarter: 2004Q3

REPORT INFORMATION
  Report Type: 
  Country: None (occurrence: None)
  Receive Date: 20040820
  Receipt Date: 20040802
  Transmission Date: 20050211
  Serious: Yes (Hospitalization, Other)
  Sender: FDA-Public Use
  Company Number: USA040772036

PATIENT
  Age: 81 Year
  Sex: Female
  Weight: 63 kg

DRUGS (6)
  1. FORTEO [Suspect]
     Indication: OSTEOPOROSIS
     Dosage: 20 UG DAY
     Dates: start: 20040423
  2. CALCIUM WITH VITAMIN D [Concomitant]
  3. MOBIC [Concomitant]
  4. COUMADIN [Concomitant]
  5. SYNTHROID [Concomitant]
  6. DETROL LA (TOLTERODINE L-TARTRATE) [Concomitant]

REACTIONS (3)
  - FEMORAL NECK FRACTURE [None]
  - PHARMACEUTICAL PRODUCT COMPLAINT [None]
  - STRESS FRACTURE [None]
